FAERS Safety Report 8176640-3 (Version None)
Quarter: 2012Q1

REPORT INFORMATION
  Report Type: 
  Country: None (occurrence: None)
  Receive Date: 20120301
  Receipt Date: 20120222
  Transmission Date: 20120608
  Serious: Yes (Other)
  Sender: FDA-Public Use
  Company Number: CA-SANOFI-AVENTIS-2012SA011703

PATIENT
  Age: 71 Year
  Sex: Female

DRUGS (2)
  1. ACTONEL [Concomitant]
     Dates: start: 20111012
  2. LOVENOX [Suspect]
     Route: 058
     Dates: start: 20120130

REACTIONS (1)
  - HYPERTENSION [None]
